FAERS Safety Report 20430300 (Version 1)
Quarter: 2022Q1

REPORT INFORMATION
  Report Type: Report from Study
  Country: FR (occurrence: FR)
  Receive Date: 20220204
  Receipt Date: 20220204
  Transmission Date: 20220424
  Serious: Yes (Other)
  Sender: FDA-Public Use
  Company Number: S20005810

PATIENT

DRUGS (11)
  1. PEGASPARGASE [Suspect]
     Active Substance: PEGASPARGASE
     Indication: Acute lymphocytic leukaemia
     Dosage: 4250 IU, D4, D43
     Route: 042
     Dates: start: 20190524
  2. TN UNSPECIFIED [Concomitant]
     Indication: Acute lymphocytic leukaemia
     Dosage: 30 MG, D4, D31
     Route: 037
     Dates: start: 20190523
  3. TN UNSPECIFIED [Concomitant]
     Indication: Acute lymphocytic leukaemia
     Dosage: 2 MG, D1, D8 , D15, D43, D50
     Route: 042
     Dates: start: 20190520
  4. TN UNSPECIFIED [Concomitant]
     Indication: Acute lymphocytic leukaemia
     Dosage: 16 MG, D1 TO D7, D15 TO D21
     Route: 048
     Dates: start: 20190520
  5. TN UNSPECIFIED [Concomitant]
     Indication: Acute lymphocytic leukaemia
     Dosage: 1700 MG, D29
     Route: 042
     Dates: start: 20190712
  6. TN UNSPECIFIED [Concomitant]
     Indication: Acute lymphocytic leukaemia
     Dosage: 30 MG, D4, D31
     Route: 037
     Dates: start: 20190523
  7. TN UNSPECIFIED [Concomitant]
     Dosage: 135 MG, D31 TO D34, D38 TO D41
     Route: 042
     Dates: start: 20190715
  8. TN UNSPECIFIED [Concomitant]
     Indication: Acute lymphocytic leukaemia
     Dosage: 102 MG, D29 TO D42
     Route: 048
     Dates: start: 20190712
  9. TN UNSPECIFIED [Concomitant]
     Indication: Acute lymphocytic leukaemia
     Dosage: 15 MG, D4, D31
     Route: 037
     Dates: start: 20190523
  10. TN UNSPECIFIED [Concomitant]
     Indication: Acute lymphocytic leukaemia
     Dosage: 44.25 MG, D1, D8, D15
     Route: 042
     Dates: start: 20190614
  11. AMLODIPINE BESYLATE [Concomitant]
     Active Substance: AMLODIPINE BESYLATE
     Indication: Hypertension
     Dosage: 5,0 MG BID
     Route: 048
     Dates: start: 20190425

REACTIONS (1)
  - Hyperlipidaemia [Recovered/Resolved]

NARRATIVE: CASE EVENT DATE: 20190821
